FAERS Safety Report 7551263-5 (Version None)
Quarter: 2011Q2

REPORT INFORMATION
  Report Type: 
  Country: None (occurrence: None)
  Receive Date: 20110616
  Receipt Date: 20110608
  Transmission Date: 20111010
  Serious: Yes (Hospitalization)
  Sender: FDA-Public Use
  Company Number: PHHO2009US01290

PATIENT
  Sex: Male
  Weight: 120 kg

DRUGS (4)
  1. PROCRIT [Concomitant]
  2. ZORTRESS [Suspect]
     Indication: RENAL TRANSPLANT
     Dosage: 0.75 MG, BID
     Route: 048
     Dates: start: 20040930, end: 20081031
  3. PREDNISONE [Concomitant]
     Indication: RENAL TRANSPLANT
  4. NEORAL [Concomitant]
     Indication: RENAL TRANSPLANT

REACTIONS (1)
  - ANAEMIA OF CHRONIC DISEASE [None]
